FAERS Safety Report 20079889 (Version 1)
Quarter: 2021Q4

REPORT INFORMATION
  Report Type: Spontaneous
  Country: US (occurrence: None)
  Receive Date: 20211116
  Receipt Date: 20211116
  Transmission Date: 20220304
  Serious: No
  Sender: FDA-Public Use
  Company Number: None

PATIENT
  Sex: Male

DRUGS (3)
  1. CABOMETYX [Suspect]
     Active Substance: CABOZANTINIB S-MALATE
     Indication: Cholangiocarcinoma
     Dosage: FREQUENCY : DAILY;?
     Route: 048
     Dates: start: 20210818, end: 20211015
  2. CABOMETYX [Suspect]
     Active Substance: CABOZANTINIB S-MALATE
     Indication: Hepatic cancer
  3. CABOMETYX [Suspect]
     Active Substance: CABOZANTINIB S-MALATE
     Indication: Bone cancer

REACTIONS (1)
  - Therapy non-responder [None]
